FAERS Safety Report 6912907-1 (Version None)
Quarter: 2010Q3

REPORT INFORMATION
  Report Type: 
  Country: None (occurrence: None)
  Receive Date: 20100806
  Receipt Date: 20090320
  Transmission Date: 20110219
  Serious: No
  Sender: FDA-Public Use
  Company Number: US-PFIZER INC-2009190140

PATIENT
  Sex: Male
  Weight: 72 kg

DRUGS (2)
  1. DETROL LA [Suspect]
     Indication: HYPERTONIC BLADDER
     Dosage: 4 MG, 1X/DAY
     Dates: start: 20090101
  2. PROZAC [Concomitant]
     Dosage: UNK

REACTIONS (1)
  - DIARRHOEA [None]
